FAERS Safety Report 19586852 (Version 1)
Quarter: 2021Q3

REPORT INFORMATION
  Report Type: Spontaneous
  Country: US (occurrence: US)
  Receive Date: 20210719
  Receipt Date: 20210719
  Transmission Date: 20211014
  Serious: Yes (Hospitalization)
  Sender: FDA-Public Use
  Company Number: None

PATIENT
  Sex: Female
  Weight: 63.5 kg

DRUGS (4)
  1. TAXOL [Suspect]
     Active Substance: PACLITAXEL
     Dates: end: 20210629
  2. CARBOPLATIN. [Suspect]
     Active Substance: CARBOPLATIN
     Dates: end: 20210615
  3. DOXORUBICIN HYDROCHLORIDE. [Suspect]
     Active Substance: DOXORUBICIN HYDROCHLORIDE
     Dates: end: 20210601
  4. CYCLOPHOSPHAMIDE. [Suspect]
     Active Substance: CYCLOPHOSPHAMIDE
     Dates: end: 20210601

REACTIONS (9)
  - Urinary tract infection [None]
  - Bacterial test [None]
  - Anaemia [None]
  - Bladder hypertrophy [None]
  - Haemoglobin decreased [None]
  - Urine output increased [None]
  - Dysuria [None]
  - Leukopenia [None]
  - White blood cell count decreased [None]

NARRATIVE: CASE EVENT DATE: 20210704
